FAERS Safety Report 8378765-6 (Version None)
Quarter: 2012Q2

REPORT INFORMATION
  Report Type: 
  Country: None (occurrence: None)
  Receive Date: 20120522
  Receipt Date: 20120509
  Transmission Date: 20120825
  Serious: Yes (Death, Life-Threatening, Hospitalization, Other)
  Sender: FDA-Public Use
  Company Number: US-MYLANLABS-2009AL000024

PATIENT
  Sex: Female
  Weight: 90.72 kg

DRUGS (36)
  1. LOMOTIL [Concomitant]
  2. KEFLEX [Concomitant]
     Dosage: X10 DAYS
  3. PROVIGIL [Concomitant]
  4. ANTIVERT [Concomitant]
  5. PROTONIX [Concomitant]
  6. SANDOSTATIN [Concomitant]
  7. CENESTIN [Concomitant]
  8. VOSOL HC /00295001/ [Concomitant]
  9. DIGOXIN [Suspect]
     Route: 048
     Dates: start: 20080213, end: 20080410
  10. NORTRIPTYLINE HCL [Concomitant]
  11. METAMUCIL-2 [Concomitant]
  12. TEMAZEPAM [Concomitant]
  13. MAXZIDE [Concomitant]
  14. CIPROFLOXACIN [Concomitant]
  15. PREDNISOLONE [Concomitant]
  16. ACETASOL /00437101/ [Concomitant]
  17. LACTULOSE [Concomitant]
  18. LEVAQUIN [Concomitant]
  19. NAPROSYN [Concomitant]
  20. CELEBREX [Concomitant]
  21. ACTONEL [Concomitant]
  22. CYMBALTA [Concomitant]
  23. CELEXA [Concomitant]
  24. ALLEGRA [Concomitant]
  25. BIAXIN [Concomitant]
  26. VAGIFEM [Concomitant]
  27. DURAHIST PE [Concomitant]
  28. BACTRIM [Concomitant]
     Dosage: BID FOR 10 DAYS AND QD FOR 20 DAYS
  29. LORTAB [Concomitant]
  30. VITAMIN K TAB [Concomitant]
  31. COLACE [Concomitant]
  32. MAGNESIUM [Concomitant]
  33. CENTRUM [Concomitant]
  34. DAYPRO [Concomitant]
  35. PHENERGAN [Concomitant]
  36. BEXTRA /01400702/ [Concomitant]

REACTIONS (50)
  - DEATH [None]
  - HEPATIC FAILURE [None]
  - RALES [None]
  - PAIN [None]
  - ECONOMIC PROBLEM [None]
  - GASTROINTESTINAL HAEMORRHAGE [None]
  - HAEMATURIA [None]
  - LABORATORY TEST ABNORMAL [None]
  - OESOPHAGITIS [None]
  - LOSS OF EMPLOYMENT [None]
  - SOCIAL AVOIDANT BEHAVIOUR [None]
  - VOMITING [None]
  - JAUNDICE [None]
  - COAGULOPATHY [None]
  - HYPONATRAEMIA [None]
  - HIATUS HERNIA [None]
  - MUCOSAL DRYNESS [None]
  - CONJUNCTIVAL HYPERAEMIA [None]
  - INJURY [None]
  - RENAL FAILURE [None]
  - PLATELET COUNT DECREASED [None]
  - HAEMORRHAGIC ANAEMIA [None]
  - DISEASE PROGRESSION [None]
  - HAEMOGLOBIN DECREASED [None]
  - ENCEPHALOPATHY [None]
  - PLEURAL EFFUSION [None]
  - INSOMNIA [None]
  - RENAL CYST [None]
  - ILL-DEFINED DISORDER [None]
  - EMOTIONAL DISTRESS [None]
  - HEPATIC ENCEPHALOPATHY [None]
  - GASTRITIS EROSIVE [None]
  - OEDEMA PERIPHERAL [None]
  - DEPRESSION [None]
  - FLUID OVERLOAD [None]
  - HAEMATOCHEZIA [None]
  - BLOOD PRESSURE SYSTOLIC INCREASED [None]
  - NAUSEA [None]
  - CARDIO-RESPIRATORY ARREST [None]
  - EAR PAIN [None]
  - RESPIRATORY TRACT CONGESTION [None]
  - CHEST X-RAY ABNORMAL [None]
  - HAEMATOCRIT DECREASED [None]
  - HEPATIC CIRRHOSIS [None]
  - CHRONIC HEPATIC FAILURE [None]
  - HEPATORENAL SYNDROME [None]
  - ANXIETY [None]
  - HYPERTENSION [None]
  - FLUID RETENTION [None]
  - LIVER DISORDER [None]
